FAERS Safety Report 14677232 (Version 1)
Quarter: 2018Q1

REPORT INFORMATION
  Report Type: Spontaneous
  Country: US (occurrence: US)
  Receive Date: 20180323
  Receipt Date: 20180323
  Transmission Date: 20180509
  Serious: No
  Sender: FDA-Public Use
  Company Number: None

PATIENT
  Age: 63 Year
  Sex: Female
  Weight: 72 kg

DRUGS (10)
  1. FLUOXETINE 40MG/DAY [Concomitant]
  2. ACETAMINOPHEN. [Concomitant]
     Active Substance: ACETAMINOPHEN
  3. MULTIVITAMIN [Concomitant]
     Active Substance: VITAMINS
  4. VITAMIN D [Suspect]
     Active Substance: CHOLECALCIFEROL
  5. BENADRYL [Concomitant]
     Active Substance: DIPHENHYDRAMINE HYDROCHLORIDE
  6. COSENTYX [Suspect]
     Active Substance: SECUKINUMAB
     Indication: PSORIATIC ARTHROPATHY
     Dosage: ?          QUANTITY:1 INJECTION(S);OTHER FREQUENCY:EVERY 28 DAYS;?
     Route: 030
     Dates: start: 20170612, end: 20171223
  7. PROBIOTIC [Concomitant]
     Active Substance: PROBIOTICS NOS
  8. B12 SUBLINGUAL 2500 [Concomitant]
  9. HYDROCODONE ACETAMINOPHEN 5-325 [Concomitant]
  10. SLEEP APNEA ORAL APPLIANCE [Concomitant]

REACTIONS (3)
  - Abdominal discomfort [None]
  - Diarrhoea [None]
  - Intestinal polyp [None]

NARRATIVE: CASE EVENT DATE: 20180214
